FAERS Safety Report 12796804 (Version 2)
Quarter: 2016Q4

REPORT INFORMATION
  Report Type: Spontaneous
  Country: GB (occurrence: GB)
  Receive Date: 20160929
  Receipt Date: 20161012
  Transmission Date: 20170207
  Serious: Yes (Other)
  Sender: FDA-Public Use
  Company Number: GB-PFIZER INC-2016448678

PATIENT
  Age: 21 Year
  Sex: Female
  Weight: 100 kg

DRUGS (1)
  1. VENLAFAXINE HCL [Suspect]
     Active Substance: VENLAFAXINE HYDROCHLORIDE
     Indication: DEPRESSION
     Dosage: 37.5 - 300MG
     Route: 048
     Dates: start: 20141031

REACTIONS (3)
  - Hyperhidrosis [Not Recovered/Not Resolved]
  - Dry mouth [Recovering/Resolving]
  - Vulvovaginal dryness [Recovered/Resolved]
